FAERS Safety Report 15378370 (Version 1)
Quarter: 2018Q3

REPORT INFORMATION
  Report Type: Spontaneous
  Country: US (occurrence: US)
  Receive Date: 20180906
  Receipt Date: 20180906
  Transmission Date: 20181010
  Serious: Yes (Hospitalization, Disabling)
  Sender: FDA-Public Use
  Company Number: None

PATIENT
  Age: 71 Year
  Sex: Male
  Weight: 98.43 kg

DRUGS (7)
  1. XARELTO [Concomitant]
     Active Substance: RIVAROXABAN
  2. CPAP [Concomitant]
     Active Substance: DEVICE
  3. PRAVASTATIN. [Concomitant]
     Active Substance: PRAVASTATIN
  4. VALSARTAN. [Suspect]
     Active Substance: VALSARTAN
     Indication: HYPERTENSION
     Dosage: ?          QUANTITY:1 PILL DAILY;?
     Route: 048
     Dates: start: 200806, end: 201807
  5. OLMESARTAN [Concomitant]
     Active Substance: OLMESARTAN
  6. MULTAQ [Concomitant]
     Active Substance: DRONEDARONE
  7. COQ10 [Concomitant]
     Active Substance: UBIDECARENONE

REACTIONS (1)
  - Renal cancer [None]
